FAERS Safety Report 15561743 (Version 2)
Quarter: 2019Q1

REPORT INFORMATION
  Report Type: Spontaneous
  Country: US (occurrence: US)
  Receive Date: 20181029
  Receipt Date: 20190312
  Transmission Date: 20190417
  Serious: Yes (Other)
  Sender: FDA-Public Use
  Company Number: US-SA-2017SA266653

PATIENT
  Age: 57 Year
  Sex: Female
  Weight: 61 kg

DRUGS (4)
  1. CYTOXAN [Concomitant]
     Active Substance: CYCLOPHOSPHAMIDE
     Indication: CHEMOTHERAPY
     Dosage: UNK
     Route: 065
  2. DOCETAXEL. [Suspect]
     Active Substance: DOCETAXEL
     Indication: BREAST CANCER
     Dosage: UNK, Q3W
     Route: 042
     Dates: start: 20110926, end: 20110926
  3. DOCETAXEL. [Suspect]
     Active Substance: DOCETAXEL
     Dosage: UNK, Q3W
     Route: 042
     Dates: start: 20120120, end: 20120120
  4. NEOSAR [Concomitant]
     Active Substance: CYCLOPHOSPHAMIDE
     Indication: CHEMOTHERAPY
     Dosage: UNK
     Route: 065

REACTIONS (5)
  - Pain [Unknown]
  - Anxiety [Unknown]
  - Impaired quality of life [Unknown]
  - Alopecia [Recovering/Resolving]
  - Emotional distress [Unknown]

NARRATIVE: CASE EVENT DATE: 20120717
